FAERS Safety Report 13516404 (Version 1)
Quarter: 2017Q2

REPORT INFORMATION
  Report Type: Spontaneous
  Country: US (occurrence: US)
  Receive Date: 20170505
  Receipt Date: 20170505
  Transmission Date: 20170830
  Serious: Yes (Other)
  Sender: FDA-Public Use
  Company Number: US-ROCHE-1927621

PATIENT
  Age: 57 Year
  Sex: Male
  Weight: 63.11 kg

DRUGS (4)
  1. ATEZOLIZUMAB [Suspect]
     Active Substance: ATEZOLIZUMAB
     Indication: LUNG CANCER METASTATIC
     Route: 042
     Dates: start: 201410, end: 201411
  2. GILOTRIF [Concomitant]
     Active Substance: AFATINIB
  3. ERLOTINIB [Suspect]
     Active Substance: ERLOTINIB
     Indication: LUNG CANCER METASTATIC
     Route: 048
     Dates: start: 201410, end: 201411
  4. ATEZOLIZUMAB [Suspect]
     Active Substance: ATEZOLIZUMAB
     Route: 042
     Dates: start: 201412, end: 201504

REACTIONS (8)
  - Neoplasm recurrence [Unknown]
  - Diarrhoea [Recovered/Resolved]
  - Acne [Recovered/Resolved]
  - Abdominal distension [Recovered/Resolved]
  - Neuropathy peripheral [Recovered/Resolved]
  - Insomnia [Recovered/Resolved]
  - Night sweats [Recovered/Resolved]
  - Hepatic failure [Recovered/Resolved]

NARRATIVE: CASE EVENT DATE: 20141021
